FAERS Safety Report 11828258 (Version 2)
Quarter: 2019Q2

REPORT INFORMATION
  Report Type: Spontaneous
  Country: US (occurrence: US)
  Receive Date: 20151211
  Receipt Date: 20190520
  Transmission Date: 20190711
  Serious: Yes (Other)
  Sender: FDA-Public Use
  Company Number: US-ELI_LILLY_AND_COMPANY-US201512000741

PATIENT
  Sex: Female

DRUGS (3)
  1. DULOXETINE HYDROCHLORIDE. [Suspect]
     Active Substance: DULOXETINE HYDROCHLORIDE
     Indication: PAIN
     Dosage: UNK, UNKNOWN
     Route: 065
     Dates: start: 20141017, end: 20141113
  2. DULOXETINE HYDROCHLORIDE. [Suspect]
     Active Substance: DULOXETINE HYDROCHLORIDE
     Indication: DEPRESSION
  3. DULOXETINE HYDROCHLORIDE. [Suspect]
     Active Substance: DULOXETINE HYDROCHLORIDE
     Indication: ANXIETY

REACTIONS (19)
  - Dizziness [Unknown]
  - Hyperhidrosis [Unknown]
  - Mood swings [Unknown]
  - Suicidal ideation [Unknown]
  - Drug withdrawal syndrome [Unknown]
  - Memory impairment [Unknown]
  - Hallucination [Unknown]
  - Headache [Unknown]
  - Tremor [Unknown]
  - Sleep disorder [Unknown]
  - Pain [Unknown]
  - Migraine [Unknown]
  - Insomnia [Unknown]
  - Irritability [Unknown]
  - Aggression [Unknown]
  - Agitation [Unknown]
  - Confusional state [Unknown]
  - Disturbance in attention [Unknown]
  - Nausea [Unknown]

NARRATIVE: CASE EVENT DATE: 20141031
